FAERS Safety Report 7931082-8 (Version None)
Quarter: 2011Q4

REPORT INFORMATION
  Report Type: 
  Country: None (occurrence: None)
  Receive Date: 20111121
  Receipt Date: 20111110
  Transmission Date: 20120403
  Serious: Yes (Other)
  Sender: FDA-Public Use
  Company Number: US-COVIDIEN/TYCO HEALTHCARE/MALLINCKRODT-T201102595

PATIENT
  Sex: Female
  Weight: 72.562 kg

DRUGS (21)
  1. CYMBALTA [Suspect]
     Indication: ANXIETY
  2. PROZAC [Suspect]
     Indication: ANXIETY
  3. PRISTIQ [Suspect]
     Indication: ANXIETY
  4. REMERON [Suspect]
     Indication: DEPRESSION
     Dosage: UNK
  5. REMERON [Suspect]
     Indication: ANXIETY
  6. ZOLOFT [Suspect]
     Indication: ANXIETY
  7. PRISTIQ [Suspect]
     Indication: DEPRESSION
     Dosage: UNK
  8. WELLBUTRIN [Suspect]
     Indication: DEPRESSION
     Dosage: UNK
  9. PAXIL [Suspect]
     Indication: DEPRESSION
     Dosage: UNK
  10. ABILIFY [Suspect]
     Indication: ANXIETY
  11. AMBIEN [Concomitant]
     Indication: SLEEP DISORDER
     Dosage: 10 MG, QD
  12. PAXIL [Suspect]
     Indication: ANXIETY
  13. NARDIL [Suspect]
     Indication: ANXIETY
  14. WELLBUTRIN [Suspect]
     Indication: ANXIETY
  15. ABILIFY [Suspect]
     Indication: DEPRESSION
     Dosage: UNK
  16. PAMELOR [Suspect]
     Indication: DEPRESSION
     Dosage: UNK
  17. PAMELOR [Suspect]
     Indication: ANXIETY
  18. ZOLOFT [Suspect]
     Indication: DEPRESSION
     Dosage: UNK
  19. PROZAC [Suspect]
     Indication: DEPRESSION
     Dosage: UNK
  20. CYMBALTA [Suspect]
     Indication: DEPRESSION
     Dosage: UNK
  21. NARDIL [Suspect]
     Indication: DEPRESSION
     Dosage: 30 MG, BID
     Dates: start: 20101228

REACTIONS (3)
  - THROMBOSIS [None]
  - DRUG INEFFECTIVE [None]
  - OEDEMA PERIPHERAL [None]
